FAERS Safety Report 5793193-5 (Version None)
Quarter: 2008Q2

REPORT INFORMATION
  Report Type: 
  Country: None (occurrence: None)
  Receive Date: 20080627
  Receipt Date: 20080623
  Transmission Date: 20081010
  Serious: Yes (Hospitalization, Other)
  Sender: FDA-Public Use
  Company Number: JP-ABBOTT-01P-087-0112985-00

PATIENT
  Sex: Male

DRUGS (42)
  1. NORVIR [Suspect]
     Indication: HIV INFECTION
     Route: 048
     Dates: start: 19991101, end: 20020228
  2. KALETRA [Suspect]
     Indication: HIV INFECTION
     Route: 048
     Dates: start: 20020401, end: 20061019
  3. KALETRA [Suspect]
     Indication: HIV INFECTION
     Route: 048
     Dates: start: 20061020, end: 20061218
  4. KALETRA [Suspect]
     Route: 048
     Dates: start: 20061219, end: 20070719
  5. KALETRA [Suspect]
     Route: 048
     Dates: start: 20070720
  6. ABACAVIR SULFATE [Suspect]
     Indication: HIV INFECTION
     Route: 048
     Dates: start: 19991101, end: 20000103
  7. SAQUINAVIR [Suspect]
     Indication: HIV INFECTION
     Route: 048
     Dates: start: 19991221, end: 20020228
  8. AMPRENAVIR [Suspect]
     Indication: HIV INFECTION
     Route: 048
     Dates: start: 19991101, end: 19991220
  9. NEVIRAPINE [Suspect]
     Indication: HIV INFECTION
     Route: 048
     Dates: start: 19991221, end: 19991230
  10. NEVIRAPINE [Suspect]
     Route: 048
     Dates: start: 20060130, end: 20060212
  11. NEVIRAPINE [Suspect]
     Route: 048
     Dates: start: 20060213, end: 20060226
  12. NEVIRAPINE [Suspect]
     Route: 048
     Dates: start: 20060227, end: 20060313
  13. NEVIRAPINE [Suspect]
     Route: 048
     Dates: start: 20060314, end: 20060320
  14. NEVIRAPINE [Suspect]
     Route: 048
     Dates: start: 20060321, end: 20060411
  15. NEVIRAPINE [Suspect]
     Route: 048
     Dates: start: 20060412, end: 20070719
  16. EFAVIRENZ [Suspect]
     Indication: HIV INFECTION
     Route: 048
     Dates: start: 19991101, end: 19991220
  17. EFAVIRENZ [Suspect]
     Route: 048
     Dates: start: 20020401, end: 20060411
  18. EFAVIRENZ [Suspect]
     Route: 048
     Dates: start: 20071112, end: 20080219
  19. LAMIVUDINE [Suspect]
     Indication: HIV INFECTION
     Route: 048
     Dates: start: 19991221, end: 20020228
  20. LAMIVUDINE [Suspect]
     Route: 048
     Dates: start: 20060130, end: 20060929
  21. STAVUDINE [Suspect]
     Indication: HIV INFECTION
     Route: 048
     Dates: start: 19991221, end: 20020228
  22. TENOFOVIR DISOPROXIL FUMARATE [Suspect]
     Indication: HIV INFECTION
     Route: 048
     Dates: start: 20020401, end: 20060928
  23. TENOFOVIR DISOPROXIL FUMARATE [Suspect]
     Route: 048
     Dates: start: 20071112, end: 20080219
  24. TENOFOVIR DISOPROXIL FUMARATE [Suspect]
  25. TRUVADA [Suspect]
     Indication: HIV INFECTION
     Route: 048
     Dates: start: 20060929, end: 20071111
  26. TRUVADA [Suspect]
     Route: 048
     Dates: start: 20080220
  27. PENTAMIDINE ISETHIONATE [Concomitant]
     Indication: ANTIFUNGAL PROPHYLAXIS
     Dates: start: 19991101
  28. 5 % GLUCOSE [Concomitant]
     Indication: ANTIFUNGAL PROPHYLAXIS
     Dates: start: 19991101
  29. 5 % GLUCOSE [Concomitant]
     Route: 042
     Dates: start: 20020401, end: 20020805
  30. OCTOCOG ALFA [Concomitant]
     Indication: FACTOR VIII DEFICIENCY
     Dates: start: 19991101, end: 19991130
  31. OCTOCOG ALFA [Concomitant]
     Dosage: 2000 - 4000 UNIT
     Dates: start: 19991201
  32. OCTOCOG ALFA [Concomitant]
     Dosage: 1000-2000 U
     Route: 042
     Dates: start: 20030626
  33. INSULIN HUMAN (GENTICAL RECOMBINATION) [Concomitant]
     Indication: DIABETES MELLITUS
     Route: 050
     Dates: start: 20020416, end: 20020501
  34. INSULIN HUMAN (GENTICAL RECOMBINATION) [Concomitant]
     Route: 050
     Dates: start: 20020502, end: 20020515
  35. INSULIN HUMAN (GENTICAL RECOMBINATION) [Concomitant]
     Route: 050
     Dates: start: 20020502, end: 20020515
  36. INSULIN HUMAN (GENTICAL RECOMBINATION) [Concomitant]
     Route: 050
     Dates: start: 20020516, end: 20020608
  37. PENTAMIDINE [Concomitant]
     Indication: ANTIFUNGAL PROPHYLAXIS
     Route: 042
     Dates: start: 20020401, end: 20020805
  38. COAGULATION FACTOR VIII [Concomitant]
     Indication: FACTOR VIII DEFICIENCY
     Route: 042
     Dates: start: 20020401, end: 20030624
  39. CLARITHROMYCIN [Concomitant]
     Indication: ANTIBIOTIC PROPHYLAXIS
     Route: 048
     Dates: start: 20020530, end: 20021125
  40. KETOTIFEN FUMARATE [Concomitant]
     Indication: INSOMNIA
     Route: 048
     Dates: start: 20021125, end: 20040125
  41. EMTRIVITABIN/TENOFOVIR [Concomitant]
     Indication: HIV INFECTION
     Route: 048
     Dates: start: 20060929
  42. INSULIN [Concomitant]
     Indication: DIABETES MELLITUS
     Dosage: 12-16 UNITS DAILY/8-10 U AM  -  4-6U PM
     Dates: start: 20071001

REACTIONS (25)
  - BLOOD ALKALINE PHOSPHATASE INCREASED [None]
  - BLOOD CHOLESTEROL INCREASED [None]
  - BLOOD LACTIC ACID INCREASED [None]
  - BLOOD TRIGLYCERIDES INCREASED [None]
  - CARDIOMEGALY [None]
  - DIABETES MELLITUS [None]
  - DIZZINESS [None]
  - EYE DISORDER [None]
  - FAT REDISTRIBUTION [None]
  - GAMMA-GLUTAMYLTRANSFERASE INCREASED [None]
  - HAEMARTHROSIS [None]
  - IMPETIGO [None]
  - INSOMNIA [None]
  - LIP EROSION [None]
  - MASS [None]
  - MUSCLE HAEMORRHAGE [None]
  - MUSCULAR WEAKNESS [None]
  - OESOPHAGEAL CANDIDIASIS [None]
  - PRURITUS [None]
  - PYREXIA [None]
  - RASH [None]
  - RENAL FUNCTION TEST ABNORMAL [None]
  - STAPHYLOCOCCAL INFECTION [None]
  - TACHYCARDIA [None]
  - WEIGHT DECREASED [None]
